FAERS Safety Report 7480781-3 (Version None)
Quarter: 2011Q2

REPORT INFORMATION
  Report Type: 
  Country: None (occurrence: None)
  Receive Date: 20110516
  Receipt Date: 20110408
  Transmission Date: 20111010
  Serious: Yes (Other)
  Sender: FDA-Public Use
  Company Number: US-BAYER-201037040NA

PATIENT
  Age: 37 Year
  Sex: Female
  Weight: 78.458 kg

DRUGS (6)
  1. YAZ [Suspect]
     Indication: PREMENSTRUAL SYNDROME
     Dosage: UNK UNK, UNK
     Route: 048
     Dates: start: 20060901, end: 20070801
  2. ZOMIG [Concomitant]
     Indication: MIGRAINE
  3. LEXAPRO [Concomitant]
     Indication: DEPRESSION
  4. TOPAMAX [Concomitant]
     Indication: MIGRAINE
  5. YASMIN [Suspect]
     Indication: PREMENSTRUAL SYNDROME
     Dosage: UNK UNK, UNK
     Route: 048
     Dates: start: 20060901, end: 20070801
  6. NSAID'S [Concomitant]

REACTIONS (4)
  - DEEP VEIN THROMBOSIS [None]
  - INJURY [None]
  - ANHEDONIA [None]
  - PAIN [None]
